FAERS Safety Report 9029176 (Version 1)
Quarter: 2013Q1

REPORT INFORMATION
  Report Type: Spontaneous
  Country: FR (occurrence: FR)
  Receive Date: 20130125
  Receipt Date: 20130125
  Transmission Date: 20140127
  Serious: Yes (Hospitalization)
  Sender: FDA-Public Use
  Company Number: FR-JNJFOC-20130107557

PATIENT
  Age: 65 None
  Sex: Male

DRUGS (16)
  1. RISPERDAL [Suspect]
     Indication: PRODUCT USED FOR UNKNOWN INDICATION
     Route: 048
     Dates: end: 20121002
  2. RISPERDAL [Suspect]
     Indication: PRODUCT USED FOR UNKNOWN INDICATION
     Route: 048
  3. ZOLOFT [Suspect]
     Indication: PRODUCT USED FOR UNKNOWN INDICATION
     Route: 048
     Dates: start: 201206, end: 20120918
  4. THERALENE [Suspect]
     Indication: PRODUCT USED FOR UNKNOWN INDICATION
     Route: 048
     Dates: end: 20120918
  5. MIANSERIN HYDROCHLORIDE [Concomitant]
     Route: 065
  6. GARDENAL [Concomitant]
     Route: 065
  7. GARDENAL [Concomitant]
     Route: 065
  8. LASILIX [Concomitant]
     Route: 065
     Dates: end: 20120914
  9. PERINDOPRIL [Concomitant]
     Route: 065
  10. PERINDOPRIL [Concomitant]
     Route: 065
  11. PREVISCAN (FLUINDIONE) [Concomitant]
     Route: 065
  12. DIAMICRON [Concomitant]
     Route: 065
     Dates: end: 20120914
  13. METFORMINE [Concomitant]
     Route: 065
     Dates: end: 20120914
  14. OGAST [Concomitant]
     Route: 065
  15. DIGOXINE [Concomitant]
     Route: 065
  16. SIMVASTATINE [Concomitant]
     Route: 065

REACTIONS (9)
  - Extrapyramidal disorder [Recovered/Resolved]
  - Weight decreased [Unknown]
  - Hyperglycaemia [Unknown]
  - Hypotension [Unknown]
  - Hyponatraemia [Recovered/Resolved]
  - Hypokalaemia [Recovered/Resolved]
  - Anaemia [Unknown]
  - Folate deficiency [Unknown]
  - Malnutrition [Unknown]
